FAERS Safety Report 19082175 (Version 1)
Quarter: 2021Q2

REPORT INFORMATION
  Report Type: Other
  Country: GB (occurrence: GB)
  Receive Date: 20210401
  Receipt Date: 20210401
  Transmission Date: 20210717
  Serious: Yes (Other)
  Sender: FDA-Public Use
  Company Number: GB-GLENMARK PHARMACEUTICALS-2021GMK053105

PATIENT

DRUGS (4)
  1. MONTELUKAST SODIUM. [Suspect]
     Active Substance: MONTELUKAST SODIUM
     Indication: PRODUCT USED FOR UNKNOWN INDICATION
     Dosage: 5 MILLIGRAM
     Route: 065
     Dates: end: 202009
  2. FLUTICASONE. [Concomitant]
     Active Substance: FLUTICASONE
     Indication: PRODUCT USED FOR UNKNOWN INDICATION
     Dosage: 2 DOSAGE FORM, BID
     Route: 055
     Dates: start: 20190912
  3. SALBUTAMOL [Concomitant]
     Active Substance: ALBUTEROL
     Indication: PRODUCT USED FOR UNKNOWN INDICATION
     Dosage: 2 DOSAGE FORM, PRN (AS NECESSARY)
     Route: 055
     Dates: start: 20190912
  4. CETRABEN [LIGHT LIQUID PARAFFIN;WHITE SOFT PARAFFIN] [Concomitant]
     Indication: PRODUCT USED FOR UNKNOWN INDICATION
     Dosage: UNK, PRN (AS NECESSARY) AT SCHOOL
     Route: 065
     Dates: start: 20201012

REACTIONS (7)
  - Decreased appetite [Not Recovered/Not Resolved]
  - Obsessive-compulsive disorder [Unknown]
  - Anxiety [Not Recovered/Not Resolved]
  - Hallucinations, mixed [Recovering/Resolving]
  - Intentional self-injury [Recovering/Resolving]
  - Nausea [Recovering/Resolving]
  - Aggression [Recovering/Resolving]
